FAERS Safety Report 7772122-9 (Version None)
Quarter: 2011Q3

REPORT INFORMATION
  Report Type: 
  Country: None (occurrence: None)
  Receive Date: 20110922
  Receipt Date: 20100802
  Transmission Date: 20111222
  Serious: No
  Sender: FDA-Public Use
  Company Number: US-ASTRAZENECA-2010SE36082

PATIENT
  Age: 23 Year
  Sex: Female

DRUGS (1)
  1. SEROQUEL XR [Suspect]
     Indication: MAJOR DEPRESSION
     Route: 048
     Dates: start: 20100501, end: 20100601

REACTIONS (3)
  - INDIFFERENCE [None]
  - DEPRESSION [None]
  - DRUG DOSE OMISSION [None]
